FAERS Safety Report 8491040-4 (Version None)
Quarter: 2012Q3

REPORT INFORMATION
  Report Type: 
  Country: None (occurrence: None)
  Receive Date: 20120706
  Receipt Date: 20120623
  Transmission Date: 20120928
  Serious: Yes (Other)
  Sender: FDA-Public Use
  Company Number: US-ELI_LILLY_AND_COMPANY-US201206009270

PATIENT
  Age: 86 Year
  Sex: Female

DRUGS (5)
  1. WARFARIN SODIUM [Concomitant]
  2. CALCIUM CARBONATE [Concomitant]
  3. PREDNISONE TAB [Concomitant]
  4. VITAMIN D [Concomitant]
  5. TERIPARATIDE [Suspect]
     Indication: OSTEOPOROSIS
     Dosage: UNK

REACTIONS (1)
  - CALCIPHYLAXIS [None]
